FAERS Safety Report 25634045 (Version 1)
Quarter: 2025Q3

REPORT INFORMATION
  Report Type: Spontaneous
  Country: US (occurrence: US)
  Receive Date: 20250801
  Receipt Date: 20250801
  Transmission Date: 20251021
  Serious: No
  Sender: AMGEN
  Company Number: US-AMGEN-USASP2025152958

PATIENT
  Sex: Female

DRUGS (2)
  1. EVENITY [Suspect]
     Active Substance: ROMOSOZUMAB-AQQG
     Indication: Osteoporosis
     Route: 065
  2. EVENITY [Suspect]
     Active Substance: ROMOSOZUMAB-AQQG
     Indication: Compression fracture

REACTIONS (6)
  - Acne [Unknown]
  - Headache [Unknown]
  - Pruritus [Unknown]
  - Bone pain [Recovered/Resolved]
  - Pain in jaw [Unknown]
  - Arthralgia [Unknown]
